FAERS Safety Report 17185193 (Version 1)
Quarter: 2019Q4

REPORT INFORMATION
  Report Type: Spontaneous
  Country: US (occurrence: US)
  Receive Date: 20191220
  Receipt Date: 20191220
  Transmission Date: 20200122
  Serious: No
  Sender: FDA-Public Use
  Company Number: US-KALA PHARAMACEUTICALS-2019KLA00054

PATIENT
  Sex: Female

DRUGS (3)
  1. BESIVANCE [Suspect]
     Active Substance: BESIFLOXACIN
     Route: 047
  2. PROLENSA [Suspect]
     Active Substance: BROMFENAC SODIUM
     Route: 047
  3. INVELTYS [Suspect]
     Active Substance: LOTEPREDNOL ETABONATE
     Route: 047

REACTIONS (3)
  - Eye disorder [Unknown]
  - Application site erythema [Unknown]
  - Application site irritation [Unknown]
